FAERS Safety Report 10451078 (Version 1)
Quarter: 2014Q3

REPORT INFORMATION
  Report Type: Spontaneous
  Country: US (occurrence: US)
  Receive Date: 20140912
  Receipt Date: 20140912
  Transmission Date: 20150326
  Serious: Yes (Other)
  Sender: FDA-Public Use
  Company Number: US-OTSUKA-US-2014-10866

PATIENT
  Age: 22 Month
  Sex: Male

DRUGS (1)
  1. BUSULFEX [Suspect]
     Active Substance: BUSULFAN
     Indication: COMBINED IMMUNODEFICIENCY
     Dosage: 90 MG/M2, UNK
     Route: 042

REACTIONS (3)
  - Thrombocytopenia [Unknown]
  - Neutropenia [Unknown]
  - Hepatic enzyme increased [Recovered/Resolved]
